FAERS Safety Report 16727010 (Version 1)
Quarter: 2019Q3

REPORT INFORMATION
  Report Type: Spontaneous
  Country: US (occurrence: US)
  Receive Date: 20190821
  Receipt Date: 20190821
  Transmission Date: 20191005
  Serious: Yes (Other)
  Sender: FDA-Public Use
  Company Number: US-BAXTER-2019BAX016163

PATIENT
  Age: 30 Year
  Sex: Female

DRUGS (9)
  1. NIFEDIPINE XL [Suspect]
     Active Substance: NIFEDIPINE
     Indication: GESTATIONAL HYPERTENSION
     Route: 065
  2. NIFEDIPINE XL [Suspect]
     Active Substance: NIFEDIPINE
     Route: 065
  3. PENICILLIN [Suspect]
     Active Substance: PENICILLIN
     Indication: PRODUCT USED FOR UNKNOWN INDICATION
     Route: 042
  4. LABETALOL HYDROCHLORIDE INJECTION, USP [Suspect]
     Active Substance: LABETALOL HYDROCHLORIDE
     Indication: GESTATIONAL HYPERTENSION
     Route: 042
  5. LABETALOL HYDROCHLORIDE INJECTION, USP [Suspect]
     Active Substance: LABETALOL HYDROCHLORIDE
     Dosage: 6 FURTHER DOSES
     Route: 042
  6. LABETALOL HYDROCHLORIDE INJECTION, USP [Suspect]
     Active Substance: LABETALOL HYDROCHLORIDE
     Route: 042
  7. NIFEDIPINE. [Suspect]
     Active Substance: NIFEDIPINE
     Indication: GESTATIONAL HYPERTENSION
     Route: 065
  8. BETAMETHASONE. [Suspect]
     Active Substance: BETAMETHASONE
     Indication: PRODUCT USED FOR UNKNOWN INDICATION
     Route: 065
  9. MAGNESIUM SULFATE. [Suspect]
     Active Substance: MAGNESIUM SULFATE
     Indication: PRODUCT USED FOR UNKNOWN INDICATION
     Route: 065

REACTIONS (2)
  - Exposure during pregnancy [Recovered/Resolved]
  - Raynaud^s phenomenon [Recovered/Resolved]
